FAERS Safety Report 18887868 (Version 2)
Quarter: 2021Q1

REPORT INFORMATION
  Report Type: Report from Study
  Country: None (occurrence: US)
  Receive Date: 20210212
  Receipt Date: 20210315
  Transmission Date: 20210420
  Serious: Yes (Other)
  Sender: FDA-Public Use
  Company Number: US-ABBVIE-21K-163-3771526-00

PATIENT
  Age: 61 Year
  Sex: Male

DRUGS (1)
  1. RINVOQ [Suspect]
     Active Substance: UPADACITINIB
     Indication: RHEUMATOID ARTHRITIS
     Route: 048

REACTIONS (4)
  - Skin cancer [Recovering/Resolving]
  - Arthritis [Unknown]
  - Bone prosthesis insertion [Not Recovered/Not Resolved]
  - Debridement [Not Recovered/Not Resolved]

NARRATIVE: CASE EVENT DATE: 202012
